FAERS Safety Report 10456964 (Version 2)
Quarter: 2014Q3

REPORT INFORMATION
  Report Type: Report from Study
  Country: DE (occurrence: PL)
  Receive Date: 20140916
  Receipt Date: 20140918
  Transmission Date: 20150326
  Serious: Yes (Death)
  Sender: FDA-Public Use
  Company Number: DE-ACTELION-A-NJ2014-105212

PATIENT
  Age: 62 Year
  Sex: Female

DRUGS (17)
  1. VENTOLIN [Concomitant]
     Active Substance: ALBUTEROL SULFATE
  2. WARFIN [Concomitant]
     Active Substance: WARFARIN
  3. NITRIC OXIDE. [Concomitant]
     Active Substance: NITRIC OXIDE
  4. WARFARIN [Concomitant]
     Active Substance: WARFARIN
  5. BISOCARD [Concomitant]
     Active Substance: BISOPROLOL
     Dosage: UNK TBS, UNK
  6. DIUVER [Concomitant]
     Active Substance: TORSEMIDE
     Dosage: UNK TBS, UNK
  7. METFORMAX [Concomitant]
     Active Substance: METFORMIN HYDROCHLORIDE
  8. HUMULIN N [Concomitant]
     Active Substance: INSULIN HUMAN
  9. SPIRIVA [Concomitant]
     Active Substance: TIOTROPIUM BROMIDE MONOHYDRATE
  10. SALMETEROL [Concomitant]
     Active Substance: SALMETEROL
  11. TELMIZEK [Concomitant]
  12. ZARANTA [Concomitant]
  13. TELMISARTAN. [Concomitant]
     Active Substance: TELMISARTAN
  14. ROSUVASTATIN [Concomitant]
     Active Substance: ROSUVASTATIN
  15. PULMOTEROL [Concomitant]
  16. EUTHYROX N [Concomitant]
  17. VENTAVIS [Suspect]
     Active Substance: ILOPROST
     Indication: PULMONARY ARTERIAL HYPERTENSION
     Dosage: UNK
     Route: 055
     Dates: start: 20140704, end: 20140709

REACTIONS (2)
  - Pulseless electrical activity [Fatal]
  - Respiratory failure [Fatal]

NARRATIVE: CASE EVENT DATE: 20140823
